FAERS Safety Report 9579872 (Version 1)
Quarter: 2013Q4

REPORT INFORMATION
  Report Type: Spontaneous
  Country: US (occurrence: US)
  Receive Date: 20131002
  Receipt Date: 20131002
  Transmission Date: 20140711
  Serious: No
  Sender: FDA-Public Use
  Company Number: US-009507513-1309USA010779

PATIENT
  Age: 72 Year
  Sex: Female
  Weight: 199.55 kg

DRUGS (9)
  1. FOSAMAX [Suspect]
     Indication: OSTEOPOROSIS
     Dosage: UNK
     Route: 048
     Dates: end: 2008
  2. FOSAMAX [Suspect]
     Indication: BONE DENSITY DECREASED
  3. CALTRATE 600 PLUS VITAMIN D [Suspect]
     Indication: BONE DENSITY DECREASED
     Dosage: 1 DF, QD
     Dates: start: 201309
  4. BONIVA [Suspect]
     Indication: OSTEOPOROSIS
     Dosage: UNK
     Dates: end: 2008
  5. BONIVA [Suspect]
     Indication: BONE DENSITY DECREASED
  6. CALCIUM (UNSPECIFIED) [Suspect]
     Dosage: UNK
  7. LISINOPRIL [Concomitant]
     Indication: HYPERTENSION
     Dosage: UNK
  8. SYNTHROID [Concomitant]
     Indication: THYROID HORMONE REPLACEMENT THERAPY
     Dosage: UNK
  9. PROZAC [Concomitant]
     Indication: DEPRESSION
     Dosage: UNK

REACTIONS (5)
  - Choking [Unknown]
  - Expired drug administered [Unknown]
  - Coeliac disease [Unknown]
  - Drug ineffective [Unknown]
  - Abdominal discomfort [Unknown]
